FAERS Safety Report 7785718-5 (Version None)
Quarter: 2011Q3

REPORT INFORMATION
  Report Type: 
  Country: None (occurrence: None)
  Receive Date: 20110929
  Receipt Date: 20110921
  Transmission Date: 20111222
  Serious: Yes (Other)
  Sender: FDA-Public Use
  Company Number: US-ASTELLAS-2011US006112

PATIENT
  Sex: Female

DRUGS (2)
  1. VESICARE [Suspect]
     Indication: PRODUCT USED FOR UNKNOWN INDICATION
     Dosage: 5 MG, UNKNOWN/D
     Route: 048
  2. VESICARE [Suspect]
     Dosage: 10 MG, UNKNOWN/D
     Route: 048

REACTIONS (4)
  - AGEUSIA [None]
  - ANAPHYLACTIC REACTION [None]
  - LIP SWELLING [None]
  - DRY MOUTH [None]
